FAERS Safety Report 25646353 (Version 1)
Quarter: 2025Q3

REPORT INFORMATION
  Report Type: Spontaneous
  Country: US (occurrence: US)
  Receive Date: 20250805
  Receipt Date: 20250805
  Transmission Date: 20251021
  Serious: Yes (Other)
  Sender: ELI LILLY AND COMPANY
  Company Number: US-ELI_LILLY_AND_COMPANY-US202507023420

PATIENT
  Age: 62 Year
  Sex: Female

DRUGS (5)
  1. PROZAC [Suspect]
     Active Substance: FLUOXETINE HYDROCHLORIDE
     Indication: Product used for unknown indication
     Route: 065
  2. PROZAC [Suspect]
     Active Substance: FLUOXETINE HYDROCHLORIDE
     Route: 065
  3. FLUOXETINE HYDROCHLORIDE [Suspect]
     Active Substance: FLUOXETINE HYDROCHLORIDE
     Indication: Product used for unknown indication
     Route: 065
  4. WELLBUTRIN [Suspect]
     Active Substance: BUPROPION HYDROCHLORIDE
     Indication: Product used for unknown indication
     Route: 065
  5. PAROXETINE HYDROCHLORIDE HEMIHYDRATE [Suspect]
     Active Substance: PAROXETINE HYDROCHLORIDE HEMIHYDRATE
     Indication: Product used for unknown indication
     Route: 065

REACTIONS (8)
  - Weight increased [Unknown]
  - Impaired gastric emptying [Unknown]
  - Abdominal pain upper [Unknown]
  - Mental impairment [Unknown]
  - Hypersomnia [Unknown]
  - Nightmare [Unknown]
  - Thinking abnormal [Unknown]
  - Somnolence [Unknown]
